FAERS Safety Report 15980007 (Version 1)
Quarter: 2019Q1

REPORT INFORMATION
  Report Type: Spontaneous
  Country: US (occurrence: US)
  Receive Date: 20190219
  Receipt Date: 20190219
  Transmission Date: 20190418
  Serious: No
  Sender: FDA-Public Use
  Company Number: US-ZYDUS-032481

PATIENT
  Age: 69 Year
  Sex: Male

DRUGS (1)
  1. CHOLESTYRAMINE. [Suspect]
     Active Substance: CHOLESTYRAMINE
     Indication: HYPERCHOLESTEROLAEMIA
     Dosage: 4 G IN 5.5 G
     Route: 048

REACTIONS (6)
  - Choking [Not Recovered/Not Resolved]
  - Abdominal pain upper [Not Recovered/Not Resolved]
  - Product use complaint [Not Recovered/Not Resolved]
  - Product use issue [Not Recovered/Not Resolved]
  - Product solubility abnormal [Not Recovered/Not Resolved]
  - Retching [Not Recovered/Not Resolved]

NARRATIVE: CASE EVENT DATE: 201812
